FAERS Safety Report 8249182-4 (Version None)
Quarter: 2012Q1

REPORT INFORMATION
  Report Type: 
  Country: None (occurrence: None)
  Receive Date: 20120314
  Receipt Date: 20120302
  Transmission Date: 20120608
  Serious: Yes (Hospitalization, Other)
  Sender: FDA-Public Use
  Company Number: 2011028352

PATIENT
  Age: 58 Year
  Sex: Female
  Weight: 82 kg

DRUGS (21)
  1. OXYGEN [Concomitant]
  2. ASPIRIN [Concomitant]
  3. LUTEIN (XANTOFYL) [Concomitant]
  4. FOSAMAX [Concomitant]
  5. PREDNISONE [Concomitant]
  6. AZMACORT INHALER (TRIAMCINOLONE ACETONIDE) [Concomitant]
  7. ZEMAIRA [Suspect]
     Indication: ALPHA-1 ANTI-TRYPSIN DEFICIENCY
     Dosage: INTRAVENOUS (NOT OTHERWISE SPECIFIED)
     Route: 042
     Dates: start: 20110601
  8. ZEMAIRA [Suspect]
     Indication: ALPHA-1 ANTI-TRYPSIN DEFICIENCY
     Dosage: 60 MG/KG 1X/WEEK INTRAVENOUS OTHERWISE SPECIFIED)
     Route: 042
  9. XANAX [Concomitant]
  10. SODIUM CHLORIDE [Concomitant]
  11. ZEMAIRA [Suspect]
     Indication: ALPHA-1 ANTI-TRYPSIN DEFICIENCY
     Dosage: 60 MG/KG 1X/WEEK INTRAVENOUS (NOT OTHERWISE SPECIFIED,
     Route: 042
     Dates: start: 20070201
  12. ZEMAIRA [Suspect]
     Indication: ALPHA-1 ANTI-TRYPSIN DEFICIENCY
     Dosage: INTRAVENOUS (NOT OTHERWISE SPECIFIED
     Route: 042
     Dates: start: 20110401
  13. ALBUTEROL [Concomitant]
  14. ZEMAIRA [Suspect]
     Indication: ALPHA-1 ANTI-TRYPSIN DEFICIENCY
     Dosage: 869 MG VIAL; MAX RATE OF 0.08 ML./KG/MIN (3 ML/MIN) INTRAVENOUS (NOT OTHERWISE SPECIFIED)
     Route: 042
  15. IBUPROFEN [Concomitant]
  16. MULTIVITAMIN (ACCOMIN MULTIVITAMIN) [Concomitant]
  17. ZEMAIRA [Suspect]
     Indication: ALPHA-1 ANTI-TRYPSIN DEFICIENCY
     Dosage: 60 MG/KG 1X/WEEK
     Dates: start: 20070101
  18. SPIRIVA [Concomitant]
  19. ACETAMINOPHEN [Concomitant]
  20. PNEUMOVAX 23 [Concomitant]
  21. DOXYCYCLINE HYCLATE [Concomitant]

REACTIONS (3)
  - SINUSITIS [None]
  - CELLULITIS [None]
  - RESPIRATORY TRACT INFECTION [None]
